FAERS Safety Report 7115429-0 (Version None)
Quarter: 2010Q4

REPORT INFORMATION
  Report Type: 
  Country: None (occurrence: None)
  Receive Date: 20101122
  Receipt Date: 20101109
  Transmission Date: 20110411
  Serious: Yes (Other)
  Sender: FDA-Public Use
  Company Number: PHHY2010BR76260

PATIENT
  Sex: Female

DRUGS (2)
  1. GENTEAL (NVO) [Suspect]
     Dosage: 10G, UNK
  2. GENTEAL (NVO) [Suspect]
     Dosage: UNK

REACTIONS (1)
  - VIITH NERVE PARALYSIS [None]
